FAERS Safety Report 5592545-6 (Version None)
Quarter: 2008Q1

REPORT INFORMATION
  Report Type: 
  Country: None (occurrence: None)
  Receive Date: 20080111
  Receipt Date: 20080102
  Transmission Date: 20080703
  Serious: Yes (Death, Other)
  Sender: FDA-Public Use
  Company Number: 08H-161-0313652-00

PATIENT
  Age: 13 Year
  Sex: Male

DRUGS (2)
  1. VANCOMYCIN HCL [Suspect]
     Indication: PERICARDIAL EFFUSION
  2. CEFTRIAXONE [Concomitant]

REACTIONS (6)
  - COMA [None]
  - HAEMODIALYSIS [None]
  - HISTIOCYTOSIS HAEMATOPHAGIC [None]
  - INFUSION RELATED REACTION [None]
  - PERITONITIS [None]
  - RED MAN SYNDROME [None]
